FAERS Safety Report 8320538-4 (Version None)
Quarter: 2012Q2

REPORT INFORMATION
  Report Type: 
  Country: None (occurrence: None)
  Receive Date: 20120430
  Receipt Date: 20120424
  Transmission Date: 20120825
  Serious: Yes (Other)
  Sender: FDA-Public Use
  Company Number: US-PFIZER INC-2011127717

PATIENT
  Sex: Female
  Weight: 72.562 kg

DRUGS (6)
  1. METFORMIN [Concomitant]
     Indication: DIABETES MELLITUS
     Dosage: UNK
  2. CELEBREX [Suspect]
     Dosage: UNK, 1X/DAY
     Dates: start: 20000101, end: 20070101
  3. CELEBREX [Suspect]
     Indication: ARTHRITIS
     Dosage: UNK
     Route: 048
     Dates: end: 20070101
  4. TYLENOL (CAPLET) [Concomitant]
     Dosage: UNK
  5. LISINOPRIL [Concomitant]
     Indication: HYPERTENSION
     Dosage: UNK
  6. WARFARIN [Concomitant]
     Dosage: 5 MG, UNK

REACTIONS (5)
  - CARDIAC OPERATION [None]
  - BLINDNESS UNILATERAL [None]
  - CEREBROVASCULAR ACCIDENT [None]
  - AMNESIA [None]
  - HEADACHE [None]
